FAERS Safety Report 19215332 (Version 7)
Quarter: 2021Q3

REPORT INFORMATION
  Report Type: Spontaneous
  Country: US (occurrence: US)
  Receive Date: 20210505
  Receipt Date: 20210816
  Transmission Date: 20211014
  Serious: Yes (Hospitalization, Other)
  Sender: FDA-Public Use
  Company Number: US-GLAXOSMITHKLINE-US2021AMR095140

PATIENT
  Age: 46 Year
  Sex: Female

DRUGS (1)
  1. ZEJULA [Suspect]
     Active Substance: NIRAPARIB
     Indication: OVARIAN CANCER
     Dosage: 200 MG, QD
     Route: 048
     Dates: start: 20200210

REACTIONS (7)
  - Dizziness [Unknown]
  - Product dose omission issue [Not Recovered/Not Resolved]
  - Thrombosis [Unknown]
  - Alopecia [Unknown]
  - Hospitalisation [Unknown]
  - Insurance issue [Unknown]
  - Fatigue [Unknown]

NARRATIVE: CASE EVENT DATE: 20210414
